FAERS Safety Report 25038106 (Version 3)
Quarter: 2025Q4

REPORT INFORMATION
  Report Type: Report from Study
  Country: US (occurrence: US)
  Receive Date: 20250304
  Receipt Date: 20251211
  Transmission Date: 20260117
  Serious: Yes (Death, Other)
  Sender: BIOGEN
  Company Number: US-BIOGEN-2025BI01299547

PATIENT
  Age: 38 Year
  Sex: Female
  Weight: 61.23 kg

DRUGS (3)
  1. TYSABRI [Suspect]
     Active Substance: NATALIZUMAB
     Indication: Multiple sclerosis
     Dosage: DOSAGE TEXT:INFUSED OVER 1 HOUR
     Dates: start: 20070301, end: 20110428
  2. TYSABRI [Suspect]
     Active Substance: NATALIZUMAB
     Dates: start: 20120229, end: 20140117
  3. TYSABRI [Suspect]
     Active Substance: NATALIZUMAB
     Dates: start: 20140228, end: 20241216

REACTIONS (3)
  - Death [Fatal]
  - Progressive multifocal leukoencephalopathy [Unknown]
  - Prescribed underdose [Recovered/Resolved]

NARRATIVE: CASE EVENT DATE: 20140228
